FAERS Safety Report 8915343 (Version 3)
Quarter: 2012Q4

REPORT INFORMATION
  Report Type: 
  Country: JP (occurrence: JP)
  Receive Date: 20121119
  Receipt Date: 20121128
  Transmission Date: 20130627
  Serious: Yes (Hospitalization)
  Sender: FDA-Public Use
  Company Number: JP-PFIZER INC-2012286189

PATIENT
  Age: 45 Year
  Sex: Male
  Weight: 76 kg

DRUGS (3)
  1. INLYTA [Suspect]
     Indication: RENAL CELL CARCINOMA
     Dosage: 5 mg, 2x/day
     Route: 048
     Dates: start: 20120927
  2. THYRADIN [Concomitant]
     Indication: HYPOTHYROIDISM
     Dosage: 100 ug, 1x/day
     Route: 048
     Dates: start: 201008
  3. WARFARIN [Concomitant]
     Indication: PULMONARY EMBOLISM
     Dosage: 2.5 mg, 1x/day
     Route: 048
     Dates: start: 20120921

REACTIONS (1)
  - Pneumonia [Recovering/Resolving]
